FAERS Safety Report 6303254-X (Version None)
Quarter: 2009Q3

REPORT INFORMATION
  Report Type: 
  Country: None (occurrence: None)
  Receive Date: 20090810
  Receipt Date: 20090401
  Transmission Date: 20100115
  Serious: No
  Sender: FDA-Public Use
  Company Number: A0776613A

PATIENT
  Age: 51 Year
  Sex: Male

DRUGS (4)
  1. PAXIL [Suspect]
     Indication: DEPRESSION
     Dosage: 50MG AT NIGHT
     Route: 048
     Dates: start: 20000101, end: 20000101
  2. XANAX [Concomitant]
  3. LOTREL [Concomitant]
  4. THYROID MEDICATION [Concomitant]

REACTIONS (4)
  - ASTHENIA [None]
  - DIZZINESS [None]
  - GAIT DISTURBANCE [None]
  - SWOLLEN TONGUE [None]
